FAERS Safety Report 9254474 (Version 1)
Quarter: 2013Q2

REPORT INFORMATION
  Report Type: Spontaneous
  Country: US (occurrence: None)
  Receive Date: 20130422
  Receipt Date: 20130422
  Transmission Date: 20140414
  Serious: Yes (Hospitalization, Disabling)
  Sender: FDA-Public Use
  Company Number: None

PATIENT
  Age: 6 Month
  Sex: Female
  Weight: 2.33 kg

DRUGS (1)
  1. VITAMIN D3 [Suspect]
     Indication: BREAST FEEDING
     Dosage: 1000 IU 3-5 TIMES WEEKLY PO
     Route: 048
     Dates: start: 20120720, end: 20130121

REACTIONS (7)
  - Hypercalcaemia [None]
  - Failure to thrive [None]
  - Feeding disorder neonatal [None]
  - Constipation [None]
  - Toxicity to various agents [None]
  - Drug level increased [None]
  - Nephrocalcinosis [None]
